FAERS Safety Report 21933844 (Version 2)
Quarter: 2023Q2

REPORT INFORMATION
  Report Type: Report from Study
  Country: US (occurrence: US)
  Receive Date: 20230201
  Receipt Date: 20230411
  Transmission Date: 20230721
  Serious: Yes (Death, Other)
  Sender: FDA-Public Use
  Company Number: US-ABBVIE-4290471

PATIENT
  Sex: Male

DRUGS (1)
  1. VENCLEXTA [Suspect]
     Active Substance: VENETOCLAX
     Indication: Product used for unknown indication
     Dosage: TIME INTERVAL: 0.14285714 DAYS
     Route: 048
     Dates: start: 20221026

REACTIONS (2)
  - Hospice care [Fatal]
  - Leukaemia [Fatal]
